FAERS Safety Report 21035347 (Version 2)
Quarter: 2022Q3

REPORT INFORMATION
  Report Type: Report from Study
  Country: GB (occurrence: GB)
  Receive Date: 20220701
  Receipt Date: 20220905
  Transmission Date: 20221027
  Serious: Yes (Other)
  Sender: FDA-Public Use
  Company Number: GB-BRISTOL-MYERS SQUIBB COMPANY-2022-063366

PATIENT
  Age: 74 Year
  Sex: Male

DRUGS (2)
  1. ORENCIA [Suspect]
     Active Substance: ABATACEPT
     Indication: Rheumatoid arthritis
     Route: 058
     Dates: start: 20201123
  2. ORENCIA [Suspect]
     Active Substance: ABATACEPT
     Indication: Crohn^s disease

REACTIONS (8)
  - Spinal fracture [Unknown]
  - Lower respiratory tract infection [Unknown]
  - Arthritis [Unknown]
  - Obstructive airways disorder [Unknown]
  - Asthenia [Unknown]
  - Cough [Unknown]
  - Poor quality sleep [Unknown]
  - Tinnitus [Unknown]
